FAERS Safety Report 7551524-X (Version None)
Quarter: 2011Q2

REPORT INFORMATION
  Report Type: 
  Country: None (occurrence: None)
  Receive Date: 20110616
  Receipt Date: 20110608
  Transmission Date: 20111010
  Serious: Yes (Hospitalization, Other)
  Sender: FDA-Public Use
  Company Number: US-JNJFOC-20110304675

PATIENT
  Sex: Female
  Weight: 81.65 kg

DRUGS (6)
  1. FENTANYL-100 [Suspect]
     Dosage: NDC#0781-7244-55
     Route: 062
     Dates: end: 20110520
  2. FENTANYL CITRATE [Suspect]
     Indication: PAIN
     Route: 062
     Dates: start: 20110520
  3. XANAX [Concomitant]
     Indication: ANXIETY
     Route: 048
     Dates: start: 19910101
  4. FENTANYL-100 [Suspect]
     Indication: PAIN
     Route: 062
     Dates: start: 20070101
  5. FENTANYL-100 [Suspect]
     Indication: BACK PAIN
     Dosage: NDC#0781-7244-55
     Route: 062
     Dates: end: 20110520
  6. OXYCODONE HCL [Concomitant]
     Indication: BREAKTHROUGH PAIN
     Dosage: 5 DOSE
     Route: 048

REACTIONS (5)
  - BLADDER DISORDER [None]
  - ABNORMAL LOSS OF WEIGHT [None]
  - COUGH [None]
  - WITHDRAWAL SYNDROME [None]
  - SNEEZING [None]
